FAERS Safety Report 4711829-4 (Version None)
Quarter: 2005Q3

REPORT INFORMATION
  Report Type: 
  Country: None (occurrence: None)
  Receive Date: 20050708
  Receipt Date: 20050118
  Transmission Date: 20060218
  Serious: Yes (Other)
  Sender: FDA-Public Use
  Company Number: PR-2004-036567

PATIENT

DRUGS (1)
  1. ULTRAVIST 300 [Suspect]
     Indication: COMPUTERISED TOMOGRAM
     Dosage: 1 DOSE, INTRAVENOUS
     Route: 042
     Dates: start: 20041109, end: 20041109

REACTIONS (2)
  - COUGH [None]
  - OROPHARYNGEAL SWELLING [None]
